FAERS Safety Report 26124807 (Version 1)
Quarter: 2025Q4

REPORT INFORMATION
  Report Type: Report from Study
  Country: IL (occurrence: IL)
  Receive Date: 20251205
  Receipt Date: 20251205
  Transmission Date: 20260118
  Serious: Yes (Other)
  Sender: TAKEDA
  Company Number: IL-TAKEDA-2025TUS109831

PATIENT
  Age: 74 Year
  Sex: Male

DRUGS (1)
  1. VEDOLIZUMAB [Suspect]
     Active Substance: VEDOLIZUMAB
     Indication: Colitis
     Dosage: 300 MILLIGRAM, Q4WEEKS
     Dates: start: 20181012

REACTIONS (1)
  - Malignant anorectal neoplasm [Unknown]
